FAERS Safety Report 5006302-2 (Version None)
Quarter: 2006Q2

REPORT INFORMATION
  Report Type: 
  Country: None (occurrence: None)
  Receive Date: 20060519
  Receipt Date: 20060509
  Transmission Date: 20061013
  Serious: Yes (Hospitalization)
  Sender: FDA-Public Use
  Company Number: 2006UW09182

PATIENT
  Age: 26444 Day
  Sex: Male

DRUGS (12)
  1. FORMOTEROL TURBUHALER [Suspect]
     Indication: CHRONIC OBSTRUCTIVE PULMONARY DISEASE
     Route: 055
     Dates: start: 20060309
  2. BUDESONIDE HFA PMDI [Suspect]
     Indication: CHRONIC OBSTRUCTIVE PULMONARY DISEASE
     Route: 055
     Dates: start: 20060309
  3. ALBUTEROL SULFATE AUTOHALER [Concomitant]
     Indication: CHRONIC OBSTRUCTIVE PULMONARY DISEASE
     Route: 055
     Dates: start: 20060309
  4. XALATAN [Concomitant]
     Indication: GLAUCOMA
     Route: 031
  5. PATAROL [Concomitant]
     Indication: RHINITIS ALLERGIC
  6. MYSOLINE [Concomitant]
     Route: 048
  7. ATROVENT [Concomitant]
     Indication: RHINITIS ALLERGIC
     Dosage: 0.3 %
     Route: 055
  8. CELEBREX [Concomitant]
     Indication: BACK PAIN
     Dates: start: 20060301
  9. HYDROXYZINE [Concomitant]
     Indication: ECZEMA
     Route: 048
  10. CLARINEX [Concomitant]
     Indication: RHINITIS ALLERGIC
     Route: 048
  11. TRIAMTERENE [Concomitant]
     Indication: MENIERE'S DISEASE
     Route: 048
  12. NEXIUM [Concomitant]
     Indication: PEPTIC ULCER
     Route: 048
     Dates: start: 20051104

REACTIONS (1)
  - PNEUMONIA [None]
